FAERS Safety Report 7240604-4 (Version None)
Quarter: 2011Q1

REPORT INFORMATION
  Report Type: 
  Country: None (occurrence: None)
  Receive Date: 20110120
  Receipt Date: 20110120
  Transmission Date: 20110831
  Serious: Yes (Disabling)
  Sender: FDA-Public Use
  Company Number: None

PATIENT
  Sex: Female
  Weight: 55.3388 kg

DRUGS (1)
  1. LEVAQUIN [Suspect]
     Indication: KIDNEY INFECTION
     Dates: start: 20090902

REACTIONS (3)
  - IMPAIRED DRIVING ABILITY [None]
  - TENDON INJURY [None]
  - ACTIVITIES OF DAILY LIVING IMPAIRED [None]
